FAERS Safety Report 24130499 (Version 1)
Quarter: 2024Q3

REPORT INFORMATION
  Report Type: Spontaneous
  Country: US (occurrence: US)
  Receive Date: 20240724
  Receipt Date: 20240724
  Transmission Date: 20241017
  Serious: No
  Sender: CSL BEHRING
  Company Number: US-BEH-2024173418

PATIENT
  Age: 72 Year
  Sex: Female

DRUGS (2)
  1. HIZENTRA [Suspect]
     Active Substance: HUMAN IMMUNOGLOBULIN G
     Indication: Polycythaemia vera
     Dosage: UNK, QW
     Route: 058
  2. DOXYCYCLINE [Concomitant]
     Active Substance: DOXYCYCLINE\DOXYCYCLINE HYCLATE
     Dosage: FOR 14 DAYS

REACTIONS (13)
  - Infusion site discharge [Not Recovered/Not Resolved]
  - Off label use [Unknown]
  - Ankle fracture [Unknown]
  - Renal disorder [Unknown]
  - Peripheral swelling [Unknown]
  - Hypoacusis [Unknown]
  - Peripheral swelling [Unknown]
  - Fluid retention [Unknown]
  - Weight increased [Unknown]
  - Cardiac disorder [Unknown]
  - Discharge [Unknown]
  - Hypertension [Unknown]
  - Ankle fracture [Unknown]

NARRATIVE: CASE EVENT DATE: 20230101
